FAERS Safety Report 7751536-7 (Version None)
Quarter: 2011Q3

REPORT INFORMATION
  Report Type: 
  Country: None (occurrence: None)
  Receive Date: 20110914
  Receipt Date: 20110908
  Transmission Date: 20111222
  Serious: Yes (Hospitalization, Other)
  Sender: FDA-Public Use
  Company Number: PHEH2011US02564

PATIENT
  Sex: Female
  Weight: 57.143 kg

DRUGS (1)
  1. RECLAST [Suspect]
     Indication: OSTEOPOROSIS
     Dosage: 5 MG, UNK (ANUAL)
     Route: 042
     Dates: start: 20110818

REACTIONS (9)
  - LOSS OF CONSCIOUSNESS [None]
  - SYNCOPE [None]
  - PERICARDITIS [None]
  - WHITE BLOOD CELL COUNT DECREASED [None]
  - BLOOD PHOSPHORUS DECREASED [None]
  - BLOOD CALCIUM DECREASED [None]
  - BLOOD PRESSURE DECREASED [None]
  - ABDOMINAL PAIN [None]
  - CARDIAC FAILURE CONGESTIVE [None]
